FAERS Safety Report 7884023-6 (Version None)
Quarter: 2011Q4

REPORT INFORMATION
  Report Type: 
  Country: None (occurrence: None)
  Receive Date: 20111102
  Receipt Date: 20111028
  Transmission Date: 20120403
  Serious: Yes (Death)
  Sender: FDA-Public Use
  Company Number: PHHY2011BR69418

PATIENT
  Sex: Male

DRUGS (2)
  1. DIOVAN HCT [Suspect]
     Dosage: 320 MG VALS AND 12.5 MG HYDR
  2. FORMOTEROL FUMARATE [Concomitant]
     Indication: DYSPNOEA

REACTIONS (3)
  - EMPHYSEMA [None]
  - GENERAL PHYSICAL CONDITION ABNORMAL [None]
  - PULMONARY EMBOLISM [None]
